FAERS Safety Report 8229790-7 (Version None)
Quarter: 2012Q1

REPORT INFORMATION
  Report Type: 
  Country: None (occurrence: None)
  Receive Date: 20120322
  Receipt Date: 20120316
  Transmission Date: 20120608
  Serious: Yes (Hospitalization)
  Sender: FDA-Public Use
  Company Number: US-ASTRAZENECA-2012SE18411

PATIENT
  Age: 61 Year
  Sex: Female

DRUGS (3)
  1. BRILINTA [Suspect]
     Route: 048
     Dates: start: 20120309
  2. ASPIRIN [Concomitant]
     Dates: start: 20120307
  3. BRILINTA [Suspect]
     Route: 048
     Dates: start: 20120307, end: 20120307

REACTIONS (2)
  - MYOCARDIAL INFARCTION [None]
  - DRUG DOSE OMISSION [None]
